FAERS Safety Report 9022698 (Version 1)
Quarter: 2013Q1

REPORT INFORMATION
  Report Type: Spontaneous
  Country: None (occurrence: US)
  Receive Date: 20130120
  Receipt Date: 20130120
  Transmission Date: 20140127
  Serious: No
  Sender: FDA-Public Use
  Company Number: US-ALLERGAN-1218036US

PATIENT
  Age: 70 None
  Sex: Female
  Weight: 88.44 kg

DRUGS (7)
  1. BOTOX? [Suspect]
     Indication: TORTICOLLIS
     Dosage: UNK UNK, SINGLE
     Route: 030
     Dates: start: 20121203, end: 20121203
  2. CENTURY SILVER 50 + [Concomitant]
     Indication: VITAMIN SUPPLEMENTATION
     Dosage: UNK
     Dates: start: 20121210
  3. BENICAR [Concomitant]
     Indication: BLOOD PRESSURE
  4. OCUVITE                            /01053801/ [Concomitant]
     Indication: EYE DISORDER
  5. VITAMIN C                          /00008001/ [Concomitant]
  6. EQUATE                             /00002701/ [Concomitant]
  7. ASPIRIN [Concomitant]
     Dosage: 81 MG, UNK

REACTIONS (2)
  - Pharyngeal oedema [Unknown]
  - Choking [Recovered/Resolved]
